FAERS Safety Report 17648512 (Version 8)
Quarter: 2020Q4

REPORT INFORMATION
  Report Type: Report from Study
  Country: US (occurrence: US)
  Receive Date: 20200408
  Receipt Date: 20201107
  Transmission Date: 20210113
  Serious: No
  Sender: FDA-Public Use
  Company Number: NVSC2020US095424

PATIENT
  Sex: Male

DRUGS (1)
  1. COSENTYX [Suspect]
     Active Substance: SECUKINUMAB
     Indication: PSORIASIS
     Dosage: 300 MG, ONCE WEEKLY FOR 5 WEEKS (LOADING),THEN ONCE EVERY 4 WEEKS (MAINTENANCE) (BENEATH THE SKIN,US
     Route: 058
     Dates: start: 20200304

REACTIONS (6)
  - Pruritus [Unknown]
  - Skin lesion [Unknown]
  - Therapeutic response shortened [Unknown]
  - Blister [Unknown]
  - Psoriasis [Unknown]
  - Sunburn [Recovered/Resolved]
